FAERS Safety Report 5061749-3 (Version None)
Quarter: 2006Q3

REPORT INFORMATION
  Report Type: 
  Country: None (occurrence: None)
  Receive Date: 20060726
  Receipt Date: 20050706
  Transmission Date: 20061208
  Serious: No
  Sender: FDA-Public Use
  Company Number: S2005US09780

PATIENT
  Age: 72 Year
  Sex: Female

DRUGS (2)
  1. DYAZIDE [Suspect]
     Indication: DRUG USE FOR UNKNOWN INDICATION
  2. ZOCOR [Suspect]
     Indication: DRUG USE FOR UNKNOWN INDICATION

REACTIONS (2)
  - DIZZINESS [None]
  - DRUG INTERACTION [None]
